FAERS Safety Report 8058642-0 (Version None)
Quarter: 2012Q1

REPORT INFORMATION
  Report Type: 
  Country: None (occurrence: None)
  Receive Date: 20120119
  Receipt Date: 20120119
  Transmission Date: 20120608
  Serious: Yes (Hospitalization)
  Sender: FDA-Public Use
  Company Number: None

PATIENT
  Age: 84 Year

DRUGS (9)
  1. EFFEXOR [Concomitant]
  2. COUMADIN [Suspect]
     Indication: DEEP VEIN THROMBOSIS
     Dosage: 16MG DAILY PO CHRONIC
     Route: 048
  3. REMERON [Concomitant]
  4. AMLODIPINE [Concomitant]
  5. MOM [Concomitant]
  6. COREG [Concomitant]
  7. DORZOLAMIDE [Concomitant]
  8. LASIX [Concomitant]
  9. SODIUM BICARBONATE [Concomitant]

REACTIONS (3)
  - FALL [None]
  - CONFUSIONAL STATE [None]
  - SUBARACHNOID HAEMORRHAGE [None]
